FAERS Safety Report 14532587 (Version 1)
Quarter: 2018Q1

REPORT INFORMATION
  Report Type: Spontaneous
  Country: FR (occurrence: FR)
  Receive Date: 20180214
  Receipt Date: 20180214
  Transmission Date: 20180509
  Serious: Yes (Hospitalization)
  Sender: FDA-Public Use
  Company Number: FR-ALLERGAN-S98-FRA-00478-01

PATIENT
  Age: 13 Year
  Sex: Female

DRUGS (1)
  1. FOSFOMYCIN TROMETHAMINE - BP [Suspect]
     Active Substance: FOSFOMYCIN TROMETHAMINE
     Indication: CYSTITIS
     Dosage: 3 G, SINGLE
     Route: 048
     Dates: start: 19971203, end: 19971203

REACTIONS (3)
  - Left ventricular dysfunction [Unknown]
  - Atrial tachycardia [Recovered/Resolved]
  - Congestive cardiomyopathy [Unknown]

NARRATIVE: CASE EVENT DATE: 19971209
